FAERS Safety Report 11492138 (Version 1)
Quarter: 2015Q3

REPORT INFORMATION
  Report Type: Spontaneous
  Country: US (occurrence: US)
  Receive Date: 20150910
  Receipt Date: 20150910
  Transmission Date: 20151125
  Serious: No
  Sender: FDA-Public Use
  Company Number: CHPA2015US010621

PATIENT
  Sex: Male

DRUGS (2)
  1. BEN-GAY [Concomitant]
     Active Substance: MENTHOL\METHYL SALICYLATE
     Indication: PRODUCT USED FOR UNKNOWN INDICATION
     Route: 065
  2. VOLTAREN [Suspect]
     Active Substance: DICLOFENAC SODIUM
     Indication: PRODUCT USED FOR UNKNOWN INDICATION
     Dosage: LITTLE MORE THAN DOSAGE CARD, UNK
     Route: 061
     Dates: start: 201505

REACTIONS (4)
  - Wrong technique in product usage process [Unknown]
  - Incorrect dose administered [Unknown]
  - Weight decreased [Unknown]
  - Alcohol test false positive [Unknown]

NARRATIVE: CASE EVENT DATE: 2015
